FAERS Safety Report 16697024 (Version 1)
Quarter: 2019Q3

REPORT INFORMATION
  Report Type: Spontaneous
  Country: US (occurrence: US)
  Receive Date: 20190813
  Receipt Date: 20190813
  Transmission Date: 20191004
  Serious: No
  Sender: FDA-Public Use
  Company Number: US-JNJFOC-20190812965

PATIENT
  Age: 68 Year
  Sex: Female
  Weight: 90.8 kg

DRUGS (2)
  1. XARELTO [Suspect]
     Active Substance: RIVAROXABAN
     Indication: DEEP VEIN THROMBOSIS
     Route: 048
     Dates: start: 20190417
  2. XARELTO [Suspect]
     Active Substance: RIVAROXABAN
     Indication: PULMONARY EMBOLISM

REACTIONS (3)
  - Alopecia [Not Recovered/Not Resolved]
  - Peripheral swelling [Not Recovered/Not Resolved]
  - Dry skin [Not Recovered/Not Resolved]

NARRATIVE: CASE EVENT DATE: 2019
